FAERS Safety Report 7918155-0 (Version None)
Quarter: 2011Q4

REPORT INFORMATION
  Report Type: 
  Country: None (occurrence: None)
  Receive Date: 20111116
  Receipt Date: 20111110
  Transmission Date: 20120403
  Serious: Yes (Hospitalization, Other)
  Sender: FDA-Public Use
  Company Number: US-ACTELION-A-US2011-56770

PATIENT

DRUGS (5)
  1. CALCIUM CHANNEL BLOCKERS [Concomitant]
  2. TRACLEER [Suspect]
     Indication: PULMONARY ARTERIAL HYPERTENSION
     Dosage: UNK MG, UNK
     Route: 048
     Dates: start: 20110228
  3. REVATIO [Concomitant]
  4. OXYGEN [Concomitant]
  5. AROMASIN [Concomitant]

REACTIONS (2)
  - PULMONARY ARTERIAL HYPERTENSION [None]
  - TREMOR [None]
